FAERS Safety Report 18446109 (Version 2)
Quarter: 2020Q4

REPORT INFORMATION
  Report Type: Spontaneous
  Country: US (occurrence: US)
  Receive Date: 20201030
  Receipt Date: 20201112
  Transmission Date: 20210114
  Serious: Yes (Hospitalization)
  Sender: FDA-Public Use
  Company Number: US-INTRA-CELLULAR THERAPIES, INC.-2020ICT00184

PATIENT
  Age: 63 Year
  Sex: Female
  Weight: 53.52 kg

DRUGS (6)
  1. ZYPREXA [Suspect]
     Active Substance: OLANZAPINE
     Dosage: 10 MG, 1X/DAY
     Dates: start: 20200918, end: 2020
  2. TRILAFON [Suspect]
     Active Substance: PERPHENAZINE
     Dosage: 8 MG, 1X/DAY
     Dates: start: 20200918, end: 2020
  3. CAPLYTA [Suspect]
     Active Substance: LUMATEPERONE
     Indication: SCHIZOPHRENIA
     Dosage: 42 MG, 1X/DAY
     Route: 048
     Dates: start: 20200922, end: 2020
  4. ZYPREXA [Suspect]
     Active Substance: OLANZAPINE
     Dosage: 20 MG, 1X/DAY
     Dates: end: 20200918
  5. COGENTIN [Concomitant]
     Active Substance: BENZTROPINE MESYLATE
     Dosage: 2 MG
     Dates: end: 20200918
  6. TRILAFON [Suspect]
     Active Substance: PERPHENAZINE
     Dosage: 16 MG, 2X/DAY
     Dates: end: 20200918

REACTIONS (3)
  - Insomnia [Recovered/Resolved]
  - Restlessness [Recovered/Resolved]
  - Neuroleptic malignant syndrome [Recovered/Resolved]

NARRATIVE: CASE EVENT DATE: 202009
